FAERS Safety Report 17664512 (Version 1)
Quarter: 2020Q2

REPORT INFORMATION
  Report Type: Spontaneous
  Country: US (occurrence: US)
  Receive Date: 20200414
  Receipt Date: 20200414
  Transmission Date: 20200713
  Serious: No
  Sender: FDA-Public Use
  Company Number: US-MYLANLABS-2020M1034890

PATIENT
  Sex: Female
  Weight: 56 kg

DRUGS (2)
  1. ESTRADIOL TRANSDERMAL SYSTEM [Suspect]
     Active Substance: ESTRADIOL
     Indication: POSTMENOPAUSE
  2. ESTRADIOL TRANSDERMAL SYSTEM [Suspect]
     Active Substance: ESTRADIOL
     Indication: HOT FLUSH
     Dosage: 1 DF, Q2W (TWICE A WEEK)
     Route: 062

REACTIONS (2)
  - Pain in extremity [Not Recovered/Not Resolved]
  - Application site rash [Not Recovered/Not Resolved]
